FAERS Safety Report 10674368 (Version 1)
Quarter: 2014Q4

REPORT INFORMATION
  Report Type: Spontaneous
  Country: US (occurrence: None)
  Receive Date: 20141210
  Receipt Date: 20141210
  Transmission Date: 20150529
  Serious: Yes (Other)
  Sender: FDA-Public Use
  Company Number: US201404626

PATIENT
  Age: 52 Year
  Sex: Female

DRUGS (1)
  1. MAS [Suspect]
     Active Substance: AMPHETAMINE
     Indication: PRODUCT USED FOR UNKNOWN INDICATION
     Route: 048

REACTIONS (3)
  - Blood pressure increased [None]
  - Aggression [None]
  - Feeling abnormal [None]

NARRATIVE: CASE EVENT DATE: 201407
